FAERS Safety Report 10065744 (Version 1)
Quarter: 2014Q2

REPORT INFORMATION
  Report Type: Spontaneous
  Country: VE (occurrence: VE)
  Receive Date: 20140408
  Receipt Date: 20140408
  Transmission Date: 20141212
  Serious: Yes (Hospitalization)
  Sender: FDA-Public Use
  Company Number: VE-ABBVIE-14P-178-1221529-00

PATIENT
  Age: 25 Year
  Sex: Female
  Weight: 43 kg

DRUGS (5)
  1. HUMIRA [Suspect]
     Indication: RHEUMATOID ARTHRITIS
     Route: 058
     Dates: start: 2011, end: 2013
  2. METHOTREXATE [Concomitant]
     Indication: RHEUMATOID ARTHRITIS
     Route: 048
     Dates: start: 2011
  3. AZULFIDINE [Concomitant]
     Indication: RHEUMATOID ARTHRITIS
     Route: 048
     Dates: start: 2011
  4. EUTHYROX [Concomitant]
     Indication: HYPOTHYROIDISM
     Dosage: 50 MD DAILY
     Route: 048
     Dates: start: 2010
  5. DIXI [Concomitant]
     Indication: POLYCYSTIC OVARIES
     Dosage: 1 DAILY
     Route: 048
     Dates: start: 2010

REACTIONS (1)
  - Abdominal adhesions [Recovered/Resolved]
